FAERS Safety Report 8399440 (Version 2)
Quarter: 2012Q4

REPORT INFORMATION
  Report Type: Report from Study
  Country: GB (occurrence: GB)
  Receive Date: 20120210
  Receipt Date: 20121004
  Transmission Date: 20130627
  Serious: Yes (Death)
  Sender: FDA-Public Use
  Company Number: GB-ABBOTT-12P-167-0901533-00

PATIENT
  Age: 72 Year
  Sex: Female
  Weight: 59 kg

DRUGS (2)
  1. HUMIRA [Suspect]
     Indication: RHEUMATOID ARTHRITIS
     Route: 058
     Dates: start: 20040315, end: 20040815
  2. STEROIDS (UNSPECIFIED) [Concomitant]
     Indication: PRODUCT USED FOR UNKNOWN INDICATION

REACTIONS (5)
  - Colon cancer [Fatal]
  - Renal cancer [Fatal]
  - Renal failure chronic [Fatal]
  - Rheumatoid arthritis [Fatal]
  - Metastases to liver [Fatal]
